FAERS Safety Report 16651506 (Version 1)
Quarter: 2019Q3

REPORT INFORMATION
  Report Type: Spontaneous
  Country: US (occurrence: US)
  Receive Date: 20190730
  Receipt Date: 20190730
  Transmission Date: 20191004
  Serious: Yes (Hospitalization)
  Sender: FDA-Public Use
  Company Number: None

PATIENT
  Sex: Male

DRUGS (16)
  1. FOLIC ACID. [Concomitant]
     Active Substance: FOLIC ACID
  2. NUERONTIN [Concomitant]
  3. PREDNISONE. [Concomitant]
     Active Substance: PREDNISONE
  4. OMEPRAZOLE. [Concomitant]
     Active Substance: OMEPRAZOLE
  5. RESTASIS [Concomitant]
     Active Substance: CYCLOSPORINE
  6. XARELTO [Concomitant]
     Active Substance: RIVAROXABAN
  7. CALCIFEROL DRO [Concomitant]
  8. TRAMADOL. [Concomitant]
     Active Substance: TRAMADOL
  9. HUMIRA [Suspect]
     Active Substance: ADALIMUMAB
     Indication: RHEUMATOID ARTHRITIS
     Dosage: ?          OTHER FREQUENCY:Q2WKS;?
     Route: 058
     Dates: start: 20170228, end: 20190729
  10. FML [Concomitant]
     Active Substance: FLUOROMETHOLONE
  11. ISOPTO CARP [Concomitant]
  12. METHOTREXATE. [Concomitant]
     Active Substance: METHOTREXATE
  13. TRAZODONE [Concomitant]
     Active Substance: TRAZODONE HYDROCHLORIDE
  14. OXYCODONE [Concomitant]
     Active Substance: OXYCODONE
  15. VITAMIN B12 [Concomitant]
     Active Substance: CYANOCOBALAMIN
  16. DILTIAZEM. [Concomitant]
     Active Substance: DILTIAZEM

REACTIONS (1)
  - Pancreatic carcinoma [None]
